FAERS Safety Report 8060718-9 (Version None)
Quarter: 2012Q1

REPORT INFORMATION
  Report Type: 
  Country: None (occurrence: None)
  Receive Date: 20120120
  Receipt Date: 20120118
  Transmission Date: 20120608
  Serious: Yes (Hospitalization)
  Sender: FDA-Public Use
  Company Number: RU-ROCHE-1026095

PATIENT
  Sex: Male
  Weight: 87 kg

DRUGS (6)
  1. ZOLEDRONOC ACID [Suspect]
     Indication: RENAL CANCER
     Route: 065
     Dates: start: 20090901, end: 20111114
  2. AVASTIN [Suspect]
     Indication: RENAL CANCER
     Route: 042
     Dates: start: 20091021, end: 20111214
  3. CAPTOPRIL [Concomitant]
     Indication: HYPERTENSION
     Dates: start: 20091115
  4. INTERFERON ALFA [Suspect]
     Indication: RENAL CANCER
     Route: 058
     Dates: start: 20091021
  5. INTERFERON ALFA [Suspect]
     Route: 058
     Dates: start: 20100407, end: 20101129
  6. METOPROLOL TARTRATE [Concomitant]
     Indication: HYPERTENSION
     Dates: start: 20091115

REACTIONS (2)
  - ABSCESS JAW [None]
  - OSTEONECROSIS OF JAW [None]
